FAERS Safety Report 5418253-X (Version None)
Quarter: 2007Q3

REPORT INFORMATION
  Report Type: 
  Country: None (occurrence: None)
  Receive Date: 20070817
  Receipt Date: 20070810
  Transmission Date: 20080115
  Serious: Yes (Life-Threatening, Hospitalization)
  Sender: FDA-Public Use
  Company Number: B0252869A

PATIENT
  Age: 23 Year
  Sex: Male

DRUGS (3)
  1. PAXIL [Suspect]
     Indication: DEPRESSION
     Route: 048
     Dates: start: 20010619, end: 20010716
  2. DIAZEPAM [Concomitant]
     Indication: INSOMNIA
     Dosage: 5MG PER DAY
     Route: 048
     Dates: start: 20010602, end: 20010718
  3. ETIZOLAM [Concomitant]
     Indication: ANXIETY
     Dosage: .5MG PER DAY
     Route: 048
     Dates: start: 20010602, end: 20010718

REACTIONS (2)
  - BRUGADA SYNDROME [None]
  - VENTRICULAR FIBRILLATION [None]
